FAERS Safety Report 14401304 (Version 3)
Quarter: 2018Q2

REPORT INFORMATION
  Report Type: Report from Study
  Country: IE (occurrence: IE)
  Receive Date: 20180117
  Receipt Date: 20180418
  Transmission Date: 20180711
  Serious: Yes (Other)
  Sender: FDA-Public Use
  Company Number: PHHY2017IE188263

PATIENT
  Age: 74 Year
  Sex: Female

DRUGS (4)
  1. MEKINIST [Suspect]
     Active Substance: TRAMETINIB DIMETHYL SULFOXIDE
     Indication: METASTATIC MALIGNANT MELANOMA
     Dosage: UNK
     Route: 048
     Dates: start: 20170507
  2. MEKINIST [Suspect]
     Active Substance: TRAMETINIB DIMETHYL SULFOXIDE
     Dosage: 2 MG, UNK
     Route: 048
     Dates: start: 20180201, end: 20180301
  3. TAFINLAR [Suspect]
     Active Substance: DABRAFENIB MESYLATE
     Indication: METASTATIC MALIGNANT MELANOMA
     Dosage: UNK
     Route: 048
     Dates: start: 20170507
  4. TAFINLAR [Suspect]
     Active Substance: DABRAFENIB MESYLATE
     Dosage: 75 MG, UNK
     Route: 048
     Dates: start: 20180201, end: 20180301

REACTIONS (7)
  - Night sweats [Not Recovered/Not Resolved]
  - Nausea [Recovered/Resolved]
  - Pyrexia [Recovered/Resolved]
  - Asthenia [Unknown]
  - Pain in extremity [Recovered/Resolved]
  - Lower respiratory tract infection [Recovered/Resolved]
  - Oral herpes [Unknown]

NARRATIVE: CASE EVENT DATE: 20171201
